FAERS Safety Report 16782356 (Version 2)
Quarter: 2019Q3

REPORT INFORMATION
  Report Type: Spontaneous
  Country: US (occurrence: US)
  Receive Date: 20190906
  Receipt Date: 20190911
  Transmission Date: 20191005
  Serious: No
  Sender: FDA-Public Use
  Company Number: US-TEVA-2019-US-1103956

PATIENT
  Sex: Female
  Weight: 92.99 kg

DRUGS (3)
  1. VENLAFAXINE HYDROCHLORIDE TEVA [Suspect]
     Active Substance: VENLAFAXINE HYDROCHLORIDE
     Indication: DEPRESSION
  2. VENLAFAXINE HYDROCHLORIDE TEVA [Suspect]
     Active Substance: VENLAFAXINE HYDROCHLORIDE
     Dosage: 37.5 MILLIGRAM DAILY;
     Route: 048
  3. VENLAFAXINE HYDROCHLORIDE TEVA [Suspect]
     Active Substance: VENLAFAXINE HYDROCHLORIDE

REACTIONS (10)
  - Depression [Unknown]
  - Dizziness [Unknown]
  - Headache [Unknown]
  - Wrong technique in product usage process [Unknown]
  - Depressed mood [Unknown]
  - Nasopharyngitis [Unknown]
  - Nausea [Unknown]
  - Anger [Unknown]
  - Gastric disorder [Unknown]
  - Feeling jittery [Unknown]
